FAERS Safety Report 10290030 (Version 1)
Quarter: 2014Q3

REPORT INFORMATION
  Report Type: Spontaneous
  Country: US (occurrence: US)
  Receive Date: 20140710
  Receipt Date: 20140710
  Transmission Date: 20150326
  Serious: No
  Sender: FDA-Public Use
  Company Number: US-ASTRAZENECA-2014SE47939

PATIENT
  Age: 60 Year
  Sex: Female
  Weight: 59 kg

DRUGS (5)
  1. SEROQUEL [Suspect]
     Active Substance: QUETIAPINE FUMARATE
     Indication: INSOMNIA
     Route: 048
  2. TRAMADOL [Concomitant]
     Active Substance: TRAMADOL
     Indication: PAIN
  3. SLEEPING PILL [Concomitant]
     Indication: SLEEP DISORDER
     Dosage: NR NR
  4. ESTRACE [Concomitant]
     Active Substance: ESTRADIOL
     Dosage: NR NR
  5. DICYCLAMINE [Concomitant]
     Indication: IRRITABLE BOWEL SYNDROME

REACTIONS (7)
  - Feeling abnormal [Recovered/Resolved]
  - Tremor [Recovered/Resolved]
  - Nausea [Not Recovered/Not Resolved]
  - Off label use [Not Recovered/Not Resolved]
  - Pain [Not Recovered/Not Resolved]
  - Malaise [Unknown]
  - Gait disturbance [Recovered/Resolved]
